FAERS Safety Report 26150739 (Version 1)
Quarter: 2025Q4

REPORT INFORMATION
  Report Type: Report from Study
  Country: US (occurrence: US)
  Receive Date: 20251212
  Receipt Date: 20251212
  Transmission Date: 20260118
  Serious: Yes (Other)
  Sender: ALEXION PHARMACEUTICALS
  Company Number: US-AstraZeneca-CH-00990912A

PATIENT
  Age: 74 Year
  Sex: Male
  Weight: 86.168 kg

DRUGS (1)
  1. DAPAGLIFLOZIN [Suspect]
     Active Substance: DAPAGLIFLOZIN
     Dosage: UNK
     Route: 065

REACTIONS (5)
  - Chronic kidney disease [Unknown]
  - Proteinuria [Unknown]
  - Hypertension [Unknown]
  - Hyperuricaemia [Unknown]
  - Proteinuria [Unknown]
